FAERS Safety Report 20571776 (Version 1)
Quarter: 2022Q1

REPORT INFORMATION
  Report Type: Report from Study
  Country: US (occurrence: US)
  Receive Date: 20220309
  Receipt Date: 20220309
  Transmission Date: 20220423
  Serious: Yes (Death)
  Sender: FDA-Public Use
  Company Number: US-EXELIXIS-CABO-22049764

PATIENT
  Age: 52 Year
  Sex: Male
  Weight: 76.64 kg

DRUGS (7)
  1. COMETRIQ [Suspect]
     Active Substance: CABOZANTINIB S-MALATE
     Indication: Thyroid cancer
     Dosage: 140 MG, QD
     Route: 048
  2. SYNTHROID [Concomitant]
     Active Substance: LEVOTHYROXINE SODIUM
  3. LENVIMA [Concomitant]
     Active Substance: LENVATINIB
  4. VITAMIN D [Concomitant]
     Active Substance: VITAMIN D NOS
  5. PROBIOTICS NOS [Concomitant]
     Active Substance: PROBIOTICS NOS
  6. VITAMIN C [Concomitant]
     Active Substance: ASCORBIC ACID
  7. AMLODIPINE\HYDROCHLOROTHIAZIDE\OLMESARTAN [Concomitant]
     Active Substance: AMLODIPINE\HYDROCHLOROTHIAZIDE\OLMESARTAN

REACTIONS (1)
  - Illness [Fatal]

NARRATIVE: CASE EVENT DATE: 20220124
